FAERS Safety Report 9227852 (Version 1)
Quarter: 2013Q2

REPORT INFORMATION
  Report Type: Spontaneous
  Country: US (occurrence: None)
  Receive Date: 20130411
  Receipt Date: 20130411
  Transmission Date: 20140414
  Serious: No
  Sender: FDA-Public Use
  Company Number: None

PATIENT
  Age: 582 Day
  Sex: Female
  Weight: 81.65 kg

DRUGS (2)
  1. FAMOTIDINE [Suspect]
     Indication: GASTROOESOPHAGEAL REFLUX DISEASE
     Dates: start: 20130408, end: 20130409
  2. FAMOTIDINE [Suspect]
     Indication: ABDOMINAL HERNIA
     Dates: start: 20130408, end: 20130409

REACTIONS (5)
  - Abnormal dreams [None]
  - Fall [None]
  - Limb injury [None]
  - Neck injury [None]
  - Limb injury [None]
